FAERS Safety Report 5119667-8 (Version None)
Quarter: 2006Q3

REPORT INFORMATION
  Report Type: 
  Country: None (occurrence: None)
  Receive Date: 20060928
  Receipt Date: 20060926
  Transmission Date: 20061208
  Serious: Yes (Death)
  Sender: FDA-Public Use
  Company Number: GXKR2005GB01379

PATIENT
  Sex: Male

DRUGS (11)
  1. ALLOPURINOL [Suspect]
     Dosage: 200 MG, ORAL
     Route: 048
  2. FUROSEMIDE [Suspect]
     Dosage: 80 MG, ORAL
  3. SIMVASTATIN [Suspect]
     Dosage: 40 MG, ORAL
     Route: 048
  4. WARFARIN SODIUM [Suspect]
  5. BECLOMETHASONE (NGX) (BECLOMETHASONE) [Suspect]
  6. COVERSYL (PERINDOPRIL ERBUMINE) [Suspect]
     Dosage: 4 MG, ORAL
  7. SPIRIVA [Suspect]
     Dosage: RESPIRATORY
     Route: 055
  8. DIGOXIN [Suspect]
     Dosage: 250 A, AUG, ORAL
     Route: 048
  9. PANTOPRAZOLE SODIUM [Suspect]
     Dosage: 20 MG, ORAL
     Route: 048
  10. VENTOLIN [Suspect]
     Dosage: RESPIRATORY
     Route: 055
  11. ACETAMINOPHEN [Suspect]

REACTIONS (2)
  - AORTIC DISSECTION [None]
  - SUDDEN DEATH [None]
